FAERS Safety Report 6941894-5 (Version None)
Quarter: 2010Q3

REPORT INFORMATION
  Report Type: 
  Country: None (occurrence: None)
  Receive Date: 20100826
  Receipt Date: 20100818
  Transmission Date: 20110219
  Serious: No
  Sender: FDA-Public Use
  Company Number: US-PFIZER INC-2010104366

PATIENT
  Sex: Female
  Weight: 81.633 kg

DRUGS (2)
  1. NEURONTIN [Suspect]
     Indication: NERVE COMPRESSION
     Dosage: 900 (UNITS UNKNOWN) IN MORNING AND AFTERNOON AND 1200 AT NIGHT, UNK
     Route: 048
  2. NEURONTIN [Suspect]
     Indication: CEREBROVASCULAR ACCIDENT
     Dosage: 900 (UNITS UNKNOWN) IN MORNING AND AFTERNOON AND 1200 AT NIGHT, 3X/DAY
     Dates: start: 20030101

REACTIONS (4)
  - DRUG INEFFECTIVE [None]
  - INCORRECT PRODUCT STORAGE [None]
  - NAUSEA [None]
  - PRODUCT TASTE ABNORMAL [None]
